FAERS Safety Report 15349077 (Version 1)
Quarter: 2018Q4

REPORT INFORMATION
  Report Type: Spontaneous
  Country: US (occurrence: US)
  Receive Date: 20180904
  Receipt Date: 20180904
  Transmission Date: 20190204
  Serious: Yes (Other)
  Sender: FDA-Public Use
  Company Number: US-THE MENTHOLATUM COMPANY-2054597

PATIENT
  Age: 68 Year
  Sex: Male

DRUGS (1)
  1. RITE AID COLD AND HOT MEDICATED [Suspect]
     Active Substance: MENTHOL
     Route: 061
     Dates: start: 20180814, end: 20180814

REACTIONS (1)
  - Application site burn [Recovering/Resolving]

NARRATIVE: CASE EVENT DATE: 20180814
